FAERS Safety Report 9940756 (Version 1)
Quarter: 2014Q1

REPORT INFORMATION
  Report Type: Spontaneous
  Country: US (occurrence: US)
  Receive Date: 20140303
  Receipt Date: 20140303
  Transmission Date: 20141002
  Serious: Yes (Hospitalization)
  Sender: FDA-Public Use
  Company Number: US-ROXANE LABORATORIES, INC.-2014-RO-00328RO

PATIENT
  Age: 49 Year
  Sex: Male

DRUGS (9)
  1. LITHIUM CARBONATE [Suspect]
     Indication: BIPOLAR DISORDER
     Dosage: 600 MG
     Route: 048
     Dates: start: 20140122
  2. INVEGA SUSTENNA [Concomitant]
  3. CYMBALTA [Concomitant]
     Dosage: 60 MG
     Route: 065
  4. ZOCOR [Concomitant]
     Indication: BLOOD CHOLESTEROL INCREASED
     Dosage: 40 MG
     Route: 065
  5. SYNTHROID [Concomitant]
     Indication: HYPERTHYROIDISM
     Dosage: 75 MCG
     Route: 065
  6. DDAVP [Concomitant]
     Dosage: 0.1 MG
     Route: 065
  7. VESICARE [Concomitant]
     Dosage: 5 MG
     Route: 065
  8. IBUPROFEN [Concomitant]
     Route: 065
  9. RISPERDAL [Concomitant]
     Route: 065

REACTIONS (1)
  - Toxicity to various agents [Recovered/Resolved]
